FAERS Safety Report 20966682 (Version 1)
Quarter: 2022Q2

REPORT INFORMATION
  Report Type: Spontaneous
  Country: US (occurrence: US)
  Receive Date: 20220616
  Receipt Date: 20220616
  Transmission Date: 20220721
  Serious: Yes (Other)
  Sender: FDA-Public Use
  Company Number: US-STRIDES ARCOLAB LIMITED-2022SP007169

PATIENT
  Age: 11 Year
  Sex: Male

DRUGS (4)
  1. HYDROCORTISONE [Suspect]
     Active Substance: HYDROCORTISONE
     Indication: Primary adrenal insufficiency
     Dosage: 5 MG 3 TIMES DAILY
     Route: 065
  2. HYDROCORTISONE [Suspect]
     Active Substance: HYDROCORTISONE
     Dosage: 10 MILLIGRAM/SQ. METER/ DAY
     Route: 065
  3. HYDROCORTISONE [Suspect]
     Active Substance: HYDROCORTISONE
     Dosage: 17.5 MILLIGRAM/SQ. METER/ DAY
     Route: 065
  4. FLUDROCORTISONE [Concomitant]
     Active Substance: FLUDROCORTISONE
     Indication: Primary adrenal insufficiency
     Dosage: 0.1 MILLIGRAM/ DAY
     Route: 065

REACTIONS (2)
  - Growth failure [Unknown]
  - Off label use [Unknown]
